FAERS Safety Report 4623108-4 (Version None)
Quarter: 2005Q1

REPORT INFORMATION
  Report Type: 
  Country: None (occurrence: None)
  Receive Date: 20050328
  Receipt Date: 20050328
  Transmission Date: 20050727
  Serious: Yes (Other)
  Sender: FDA-Public Use
  Company Number: None

PATIENT
  Sex: Female

DRUGS (1)
  1. CORRECTOL [Suspect]
     Dosage: ORAL
     Route: 048

REACTIONS (2)
  - INJURY [None]
  - LAXATIVE ABUSE [None]
